FAERS Safety Report 25900598 (Version 1)
Quarter: 2025Q4

REPORT INFORMATION
  Report Type: Spontaneous
  Country: US (occurrence: None)
  Receive Date: 20251008
  Receipt Date: 20251008
  Transmission Date: 20260117
  Serious: Yes (Other)
  Sender: FDA-CTU
  Company Number: None

PATIENT
  Age: 44 Year
  Sex: Male
  Weight: 153.9 kg

DRUGS (10)
  1. BENZONATATE [Suspect]
     Active Substance: BENZONATATE
     Indication: COVID-19
     Dates: start: 20250820, end: 20250820
  2. HYDROCHLOROTHIAZIDE\LISINOPRIL [Concomitant]
     Active Substance: HYDROCHLOROTHIAZIDE\LISINOPRIL
  3. TESTOSTERONE [Concomitant]
     Active Substance: TESTOSTERONE
  4. ESTRADIOL CYPIONATE [Concomitant]
     Active Substance: ESTRADIOL CYPIONATE
  5. ZYRTEC [Concomitant]
     Active Substance: CETIRIZINE HYDROCHLORIDE
  6. ESCITALOPRAM [Concomitant]
     Active Substance: ESCITALOPRAM OXALATE
  7. VITAMINS [Concomitant]
     Active Substance: VITAMINS
  8. HERBALS\SAW PALMETTO [Concomitant]
     Active Substance: HERBALS\SAW PALMETTO
  9. CITRULLINE [Concomitant]
     Active Substance: CITRULLINE
  10. FISH OIL [Concomitant]
     Active Substance: FISH OIL

REACTIONS (4)
  - Confusional state [None]
  - Somnolence [None]
  - Hallucination, visual [None]
  - Therapy cessation [None]

NARRATIVE: CASE EVENT DATE: 20250820
